FAERS Safety Report 8775618 (Version 1)
Quarter: 2012Q4

REPORT INFORMATION
  Report Type: 
  Country: US (occurrence: US)
  Receive Date: 20120909
  Receipt Date: 20120909
  Transmission Date: 20130627
  Serious: No
  Sender: FDA-Public Use
  Company Number: US-009507513-1209USA001875

PATIENT

DRUGS (1)
  1. DULERA [Suspect]
     Indication: ASTHMA
     Dosage: UNK
     Dates: start: 20120216, end: 20120306

REACTIONS (2)
  - Dyspnoea [Recovering/Resolving]
  - Headache [Recovering/Resolving]
